FAERS Safety Report 16651082 (Version 1)
Quarter: 2019Q3

REPORT INFORMATION
  Report Type: Spontaneous
  Country: DE (occurrence: DE)
  Receive Date: 20190731
  Receipt Date: 20190731
  Transmission Date: 20191004
  Serious: Yes (Hospitalization, Other)
  Sender: FDA-Public Use
  Company Number: DE-MYLANLABS-2019M1070849

PATIENT
  Age: 74 Year
  Sex: Female

DRUGS (1)
  1. MITOMYCIN. [Suspect]
     Active Substance: MITOMYCIN
     Indication: BLADDER CANCER
     Route: 043

REACTIONS (6)
  - Escherichia infection [Recovered/Resolved]
  - Bladder perforation [Recovered/Resolved]
  - General physical health deterioration [Recovered/Resolved]
  - Superinfection [Recovered/Resolved]
  - Bladder necrosis [Recovered/Resolved]
  - Urinary bladder abscess [Recovered/Resolved]
